FAERS Safety Report 17508349 (Version 1)
Quarter: 2020Q1

REPORT INFORMATION
  Report Type: Spontaneous
  Country: CN (occurrence: CN)
  Receive Date: 20200306
  Receipt Date: 20200306
  Transmission Date: 20200409
  Serious: Yes (Other)
  Sender: FDA-Public Use
  Company Number: CN-BAXTER-2020BAX004923

PATIENT
  Age: 48 Year
  Sex: Female
  Weight: 73 kg

DRUGS (12)
  1. 0.9% SODIUM CHLORIDE INJECTION [Suspect]
     Active Substance: SODIUM CHLORIDE
     Dosage: DOSE RE-INTRODUCED, CYCLOPHOSPHAMIDE POWDER FOR INJECTION + 0.9% NS
     Route: 041
     Dates: start: 202002
  2. PIRARUBICIN HYDROCHLORIDE [Suspect]
     Active Substance: PIRARUBICIN HYDROCHLORIDE
     Indication: INVASIVE DUCTAL BREAST CARCINOMA
     Dosage: FIRST AND SECOND CHEMOTHERAPY, PIRARUBICIN HYDROCHLORIDE POWDER FOR INJECTION + 0.9% NS
     Route: 041
  3. 0.9% SODIUM CHLORIDE INJECTION [Suspect]
     Active Substance: SODIUM CHLORIDE
     Indication: MEDICATION DILUTION
     Dosage: FIRST AND SECOND CHEMOTHERAPY, CYCLOPHOSPHAMIDE POWDER FOR INJECTION + 0.9% NS
     Route: 041
  4. PIRARUBICIN HYDROCHLORIDE [Suspect]
     Active Substance: PIRARUBICIN HYDROCHLORIDE
     Dosage: THIRD CHEMOTHERAPY, PIRARUBICIN HYDROCHLORIDE POWDER FOR INJECTION + 0.9% NS 100 ML
     Route: 041
     Dates: start: 20200203, end: 20200203
  5. 0.9% SODIUM CHLORIDE INJECTION [Suspect]
     Active Substance: SODIUM CHLORIDE
     Dosage: FIRST AND SECOND CHEMOTHERAPY, PIRARUBICIN HYDROCHLORIDE POWDER FOR INJECTION + 0.9% NS
     Route: 041
  6. ENDOXAN [Suspect]
     Active Substance: CYCLOPHOSPHAMIDE
     Dosage: THIRD CHEMOTHERAPY, CYCLOPHOSPHAMIDE POWDER FOR INJECTION + 0.9% NS 100 ML
     Route: 041
     Dates: start: 20200203, end: 20200203
  7. 0.9% SODIUM CHLORIDE INJECTION [Suspect]
     Active Substance: SODIUM CHLORIDE
     Dosage: DOSE RE-INTRODUCED, PIRARUBICIN HYDROCHLORIDE POWDER FOR INJECTION + 0.9% NS
     Route: 041
     Dates: start: 202002
  8. ENDOXAN [Suspect]
     Active Substance: CYCLOPHOSPHAMIDE
     Dosage: DOSE RE-INTRODUCED, CYCLOPHOSPHAMIDE POWDER FOR INJECTION + 0.9% NS
     Route: 041
     Dates: start: 202002
  9. PIRARUBICIN HYDROCHLORIDE [Suspect]
     Active Substance: PIRARUBICIN HYDROCHLORIDE
     Dosage: DOSE RE-INTRODUCED, PIRARUBICIN HYDROCHLORIDE POWDER FOR INJECTION + 0.9% NS
     Route: 041
     Dates: start: 202002
  10. ENDOXAN [Suspect]
     Active Substance: CYCLOPHOSPHAMIDE
     Indication: INVASIVE DUCTAL BREAST CARCINOMA
     Dosage: FIRST AND SECOND CHEMOTHERAPY, CYCLOPHOSPHAMIDE POWDER FOR INJECTION + 0.9% NS
     Route: 041
  11. 0.9% SODIUM CHLORIDE INJECTION [Suspect]
     Active Substance: SODIUM CHLORIDE
     Dosage: THIRD CHEMOTHERAPY, CYCLOPHOSPHAMIDE POWDER FOR INJECTION 1.1 G + 0.9% NS
     Route: 041
     Dates: start: 20200203, end: 20200203
  12. 0.9% SODIUM CHLORIDE INJECTION [Suspect]
     Active Substance: SODIUM CHLORIDE
     Dosage: THIRD CHEMOTHERAPY, PIRARUBICIN HYDROCHLORIDE POWDER FOR INJECTION 110 MG + 0.9% NS
     Route: 041
     Dates: start: 20200203, end: 20200203

REACTIONS (2)
  - White blood cell count decreased [Recovered/Resolved]
  - Neutrophil count decreased [Recovered/Resolved]

NARRATIVE: CASE EVENT DATE: 20200218
